FAERS Safety Report 20808189 (Version 1)
Quarter: 2022Q2

REPORT INFORMATION
  Report Type: Spontaneous
  Country: US (occurrence: None)
  Receive Date: 20220509
  Receipt Date: 20220509
  Transmission Date: 20220721
  Serious: Yes (Life-Threatening, Hospitalization)
  Sender: FDA-Public Use
  Company Number: None

PATIENT
  Age: 82 Year
  Sex: Male
  Weight: 98 kg

DRUGS (1)
  1. CEFEPIME [Suspect]
     Active Substance: CEFEPIME HYDROCHLORIDE
     Indication: Seizure
     Dosage: FREQUENCY : TWICE A DAY;?
     Route: 042
     Dates: start: 20220125, end: 20220201

REACTIONS (5)
  - Hyporesponsive to stimuli [None]
  - Mental status changes [None]
  - Neurotoxicity [None]
  - Seizure [None]
  - Status epilepticus [None]

NARRATIVE: CASE EVENT DATE: 20220131
